FAERS Safety Report 19103012 (Version 1)
Quarter: 2021Q2

REPORT INFORMATION
  Report Type: Spontaneous
  Country: US (occurrence: US)
  Receive Date: 20210407
  Receipt Date: 20210407
  Transmission Date: 20210717
  Serious: Yes (Other)
  Sender: FDA-Public Use
  Company Number: US-GLAXOSMITHKLINE-US2021073412

PATIENT
  Sex: Female

DRUGS (2)
  1. BREO ELLIPTA [Suspect]
     Active Substance: FLUTICASONE FUROATE\VILANTEROL TRIFENATATE
     Dosage: 1 PUFF(S), BID, 200/25 MCG
     Dates: start: 202102
  2. BREO ELLIPTA [Suspect]
     Active Substance: FLUTICASONE FUROATE\VILANTEROL TRIFENATATE
     Indication: PRODUCT USED FOR UNKNOWN INDICATION
     Dosage: 1 PUFF(S), QD, 100/25 MCG
     Dates: start: 2015

REACTIONS (6)
  - Palpitations [Unknown]
  - Product dispensing error [Unknown]
  - Overdose [Unknown]
  - Off label use [Unknown]
  - Arrhythmia [Unknown]
  - Drug ineffective [Unknown]
